FAERS Safety Report 19378465 (Version 2)
Quarter: 2021Q2

REPORT INFORMATION
  Report Type: Report from Study
  Country: CA (occurrence: CA)
  Receive Date: 20210606
  Receipt Date: 20210623
  Transmission Date: 20210717
  Serious: Yes (Hospitalization)
  Sender: FDA-Public Use
  Company Number: CA-JNJFOC-20210557318

PATIENT
  Sex: Male

DRUGS (6)
  1. BOSENTAN. [Suspect]
     Active Substance: BOSENTAN
     Indication: PULMONARY HYPERTENSION
     Route: 048
     Dates: start: 20120801
  2. RAMIPRIL. [Concomitant]
     Active Substance: RAMIPRIL
  3. FERROUS GLUCONATE [Concomitant]
     Active Substance: FERROUS GLUCONATE
  4. APO?SIMVASTATIN [Concomitant]
     Active Substance: SIMVASTATIN
  5. ADALAT [Concomitant]
     Active Substance: NIFEDIPINE
  6. METOPROLOL. [Concomitant]
     Active Substance: METOPROLOL

REACTIONS (1)
  - Hospitalisation [Not Recovered/Not Resolved]
